FAERS Safety Report 23415225 (Version 2)
Quarter: 2024Q4

REPORT INFORMATION
  Report Type: Spontaneous
  Country: RO (occurrence: RO)
  Receive Date: 20240118
  Receipt Date: 20241119
  Transmission Date: 20250115
  Serious: Yes (Hospitalization, Other)
  Sender: RANBAXY
  Company Number: RO-SUN PHARMACEUTICAL INDUSTRIES LTD-2024R1-427249

PATIENT
  Age: 58 Year
  Sex: Male

DRUGS (5)
  1. VANCOMYCIN [Suspect]
     Active Substance: VANCOMYCIN
     Indication: Prophylaxis
     Dosage: 125 MILLIGRAM, BID
     Route: 048
  2. SULFAMETHOXAZOLE\TRIMETHOPRIM [Suspect]
     Active Substance: SULFAMETHOXAZOLE\TRIMETHOPRIM
     Indication: Urinary tract infection
     Dosage: UNK (1 TABLET EVERY 12 HOURS)
     Route: 065
  3. LEVOFLOXACIN [Suspect]
     Active Substance: LEVOFLOXACIN
     Indication: Urinary tract infection
     Dosage: 750 MILLIGRAM, TID
     Route: 065
  4. LINEZOLID [Suspect]
     Active Substance: LINEZOLID
     Indication: Abscess
     Dosage: 600 MILLIGRAM, BID
     Route: 065
  5. DAPTOMYCIN [Suspect]
     Active Substance: DAPTOMYCIN
     Indication: Klebsiella infection
     Dosage: 500 MILLIGRAM (48H)
     Route: 065

REACTIONS (6)
  - Sepsis syndrome [Unknown]
  - Septic encephalopathy [Unknown]
  - Acute kidney injury [Unknown]
  - Pleural effusion [Unknown]
  - Decubitus ulcer [Unknown]
  - Disease progression [Unknown]
